FAERS Safety Report 15736349 (Version 1)
Quarter: 2018Q4

REPORT INFORMATION
  Report Type: Spontaneous
  Country: US (occurrence: US)
  Receive Date: 20181203
  Receipt Date: 20181203
  Transmission Date: 20190205
  Serious: Yes (Hospitalization)
  Sender: FDA-Public Use
  Company Number: None

PATIENT
  Age: 45 Year
  Sex: Female
  Weight: 99.3 kg

DRUGS (2)
  1. ADRIAMYCIN/CYTOXAN [Suspect]
     Active Substance: CYCLOPHOSPHAMIDE\DOXORUBICIN
     Indication: BREAST CANCER
     Dosage: ?          OTHER DOSE:MEDI4736;OTHER FREQUENCY:EVERY 2 WEEKS;?
     Route: 042
     Dates: start: 20181101, end: 20181121
  2. ADRIAMYCIN/CYTOXAN [Suspect]
     Active Substance: CYCLOPHOSPHAMIDE\DOXORUBICIN
     Indication: BREAST CANCER
     Dosage: ?          OTHER FREQUENCY:EVERY 2 WEEKS;?
     Route: 042
     Dates: start: 20181101, end: 20181121

REACTIONS (6)
  - Myalgia [None]
  - Full blood count decreased [None]
  - Arthralgia [None]
  - Pyrexia [None]
  - Diverticulitis [None]
  - Oropharyngeal pain [None]

NARRATIVE: CASE EVENT DATE: 20181124
